FAERS Safety Report 24890902 (Version 1)
Quarter: 2025Q1

REPORT INFORMATION
  Report Type: Spontaneous
  Country: FR (occurrence: FR)
  Receive Date: 20250127
  Receipt Date: 20250127
  Transmission Date: 20250409
  Serious: Yes (Hospitalization, Other)
  Sender: ASTELLAS
  Company Number: FR-ASTELLAS-2025-AER-003193

PATIENT
  Sex: Female

DRUGS (1)
  1. TACROLIMUS [Suspect]
     Active Substance: TACROLIMUS
     Indication: Liver transplant
     Route: 065
     Dates: start: 1988

REACTIONS (8)
  - Liver abscess [Recovered/Resolved]
  - Candida infection [Recovered/Resolved]
  - Fungaemia [Recovered/Resolved]
  - Intra-abdominal haematoma [Unknown]
  - Peritonitis [Unknown]
  - Fungal infection [Unknown]
  - Fungal disease carrier [Unknown]
  - Infective aneurysm [Recovered/Resolved]

NARRATIVE: CASE EVENT DATE: 20210701
